FAERS Safety Report 5604562-8 (Version None)
Quarter: 2008Q1

REPORT INFORMATION
  Report Type: 
  Country: None (occurrence: None)
  Receive Date: 20080128
  Receipt Date: 20080117
  Transmission Date: 20080703
  Serious: Yes (Hospitalization)
  Sender: FDA-Public Use
  Company Number: US-MERCK-0710USA04998

PATIENT
  Age: 70 Year
  Sex: Female
  Weight: 67 kg

DRUGS (7)
  1. COZAAR [Suspect]
     Indication: BLOOD PRESSURE
     Route: 048
     Dates: start: 20060101
  2. LOVASTATIN [Concomitant]
     Route: 065
  3. METOPROLOL TARTRATE [Concomitant]
     Route: 065
  4. ASPIRIN [Concomitant]
     Route: 065
  5. LORAZEPAM [Concomitant]
     Route: 065
  6. PRILOSEC [Concomitant]
     Route: 065
  7. EVISTA [Concomitant]
     Route: 065

REACTIONS (4)
  - DYSGEUSIA [None]
  - HYPERTENSION [None]
  - OSTEOPOROSIS [None]
  - OVARIAN CYST [None]
